FAERS Safety Report 17108491 (Version 1)
Quarter: 2019Q4

REPORT INFORMATION
  Report Type: Spontaneous
  Country: US (occurrence: US)
  Receive Date: 20191203
  Receipt Date: 20191203
  Transmission Date: 20200122
  Serious: No
  Sender: FDA-Public Use
  Company Number: US-US WORLDMEDS, LLC-USW201908-001628

PATIENT
  Sex: Male

DRUGS (1)
  1. LUCEMYRA [Suspect]
     Active Substance: LOFEXIDINE
     Indication: PRURITUS
     Dosage: UNKNOWN

REACTIONS (1)
  - Off label use [Unknown]
